FAERS Safety Report 4397717-4 (Version None)
Quarter: 2004Q3

REPORT INFORMATION
  Report Type: 
  Country: None (occurrence: None)
  Receive Date: 20040713
  Receipt Date: 20040628
  Transmission Date: 20050211
  Serious: Yes (Hospitalization)
  Sender: FDA-Public Use
  Company Number: 2004-BP-04090BP

PATIENT
  Age: 84 Year
  Sex: Male

DRUGS (5)
  1. FLOMAX [Suspect]
     Indication: BENIGN PROSTATIC HYPERPLASIA
     Dosage: 0.4 MG  (0.4 MG, 1 QD), PO
     Route: 048
     Dates: start: 20040301, end: 20040401
  2. SYNTHROID [Concomitant]
  3. METOPROLOL (METOPROLOL) [Concomitant]
  4. LANOXIN [Concomitant]
  5. DILTIAZEM [Concomitant]

REACTIONS (4)
  - DIZZINESS [None]
  - ESCHERICHIA INFECTION [None]
  - TREATMENT NONCOMPLIANCE [None]
  - URINARY TRACT INFECTION ENTEROCOCCAL [None]
